FAERS Safety Report 9306904 (Version 1)
Quarter: 2013Q1

REPORT INFORMATION
  Report Type: Spontaneous
  Country: US (occurrence: None)
  Receive Date: 20130313
  Receipt Date: 20130313
  Transmission Date: 20140127
  Serious: Yes (Hospitalization, Disabling)
  Sender: FDA-Public Use
  Company Number: AUR-APL-2013-01793

PATIENT
  Age: 38 Year
  Sex: Female

DRUGS (2)
  1. RIBAVIRIN (RIBAVIRIN) [Suspect]
     Indication: CHRONIC HEPATITIS C
  2. INTERFERON ALFA-2A [Suspect]
     Indication: CHRONIC HEPATITIS C

REACTIONS (3)
  - Extrapyramidal disorder [None]
  - Abasia [None]
  - Monoparesis [None]
